FAERS Safety Report 18840343 (Version 1)
Quarter: 2021Q1

REPORT INFORMATION
  Report Type: Spontaneous
  Country: GB (occurrence: GB)
  Receive Date: 20210203
  Receipt Date: 20210203
  Transmission Date: 20210419
  Serious: Yes (Life-Threatening, Hospitalization)
  Sender: FDA-Public Use
  Company Number: GB-CANTON LABORATORIES, LLC-2106261

PATIENT
  Age: 53 Year
  Sex: Female

DRUGS (3)
  1. OESTRODOSE [Concomitant]
     Active Substance: ESTRADIOL
     Route: 065
  2. NAPROSYN [Suspect]
     Active Substance: NAPROXEN
     Indication: HEADACHE
     Route: 048
     Dates: start: 20201230, end: 20201230
  3. UTROGESTAN [Concomitant]
     Active Substance: PROGESTERONE
     Route: 065
     Dates: start: 20200301

REACTIONS (10)
  - Anxiety [Recovered/Resolved]
  - Erythema [Recovered/Resolved]
  - Vomiting [Recovered/Resolved]
  - Hypoaesthesia oral [Recovered/Resolved]
  - Syncope [Recovered/Resolved]
  - Sensation of foreign body [Recovered/Resolved]
  - Paraesthesia oral [Recovered/Resolved]
  - Headache [Recovered/Resolved]
  - Pruritus [Recovered/Resolved]
  - Visual impairment [Recovered/Resolved]

NARRATIVE: CASE EVENT DATE: 20201230
